FAERS Safety Report 5968746-1 (Version None)
Quarter: 2008Q4

REPORT INFORMATION
  Report Type: 
  Country: None (occurrence: None)
  Receive Date: 20081126
  Receipt Date: 20081125
  Transmission Date: 20090506
  Serious: Yes (Hospitalization, Other)
  Sender: FDA-Public Use
  Company Number: US-ABBOTT-08P-163-0489661-00

PATIENT
  Sex: Female
  Weight: 99.88 kg

DRUGS (18)
  1. HUMIRA [Suspect]
     Indication: RHEUMATOID ARTHRITIS
     Route: 058
     Dates: start: 20060101
  2. MAXZIDE [Concomitant]
     Indication: HYPERTENSION
  3. AZULFADINE [Concomitant]
     Indication: RHEUMATOID ARTHRITIS
  4. CONJUGATED ESTROGENS [Concomitant]
     Indication: HORMONE REPLACEMENT THERAPY
  5. CITALOPRAM HYDROBROMIDE [Concomitant]
     Indication: DEPRESSION
  6. CITALOPRAM HYDROBROMIDE [Concomitant]
     Indication: PAIN
  7. MULTIPLE VITAMIN [Concomitant]
     Indication: ROUTINE HEALTH MAINTENANCE
  8. CALCIUM [Concomitant]
     Indication: DRUG USE FOR UNKNOWN INDICATION
  9. MAGNESIUM SULFATE [Concomitant]
     Indication: DRUG USE FOR UNKNOWN INDICATION
  10. VITAMIN B [Concomitant]
     Indication: DRUG USE FOR UNKNOWN INDICATION
  11. LOVOXYL [Concomitant]
     Indication: HYPOTHYROIDISM
  12. SERETIDE [Concomitant]
     Indication: ASTHMA
  13. OMEPRAZOLE [Concomitant]
     Indication: GASTROOESOPHAGEAL REFLUX DISEASE
  14. LIDOCAINE [Concomitant]
     Indication: PAIN
  15. PARACETAMOL [Concomitant]
     Indication: PAIN
  16. OXYCODONE HCL [Concomitant]
     Indication: PAIN
  17. HUMABID [Concomitant]
     Indication: RESPIRATORY TRACT CONGESTION
  18. PREGABALIN [Concomitant]
     Indication: PAIN IN EXTREMITY

REACTIONS (4)
  - BLOOD POTASSIUM DECREASED [None]
  - RED BLOOD CELL COUNT DECREASED [None]
  - SPINAL COLUMN STENOSIS [None]
  - SPINAL OSTEOARTHRITIS [None]
